FAERS Safety Report 21586904 (Version 1)
Quarter: 2022Q4

REPORT INFORMATION
  Report Type: Spontaneous
  Country: US (occurrence: None)
  Receive Date: 20221110
  Receipt Date: 20221110
  Transmission Date: 20230113
  Serious: No
  Sender: FDA-Public Use
  Company Number: None

PATIENT
  Sex: Female

DRUGS (1)
  1. HYQVIA [Suspect]
     Active Substance: HUMAN IMMUNOGLOBULIN G\HYALURONIDASE RECOMBINANT HUMAN
     Indication: Secondary immunodeficiency
     Dosage: OTHER STRENGTH : 2.5/25 GM/ML;?FREQUENCY : EVERY OTHER WEEK;?
     Route: 058
     Dates: start: 202201

REACTIONS (1)
  - Drug hypersensitivity [None]
